FAERS Safety Report 20661802 (Version 2)
Quarter: 2022Q3

REPORT INFORMATION
  Report Type: Report from Study
  Country: CO (occurrence: CO)
  Receive Date: 20220401
  Receipt Date: 20220913
  Transmission Date: 20221027
  Serious: Yes (Other)
  Sender: FDA-Public Use
  Company Number: CO-NOVARTISPH-PHHY2017CO161704

PATIENT
  Age: 55 Year
  Sex: Female
  Weight: 79 kg

DRUGS (3)
  1. COSENTYX [Suspect]
     Active Substance: SECUKINUMAB
     Indication: Psoriasis
     Dosage: 300 MG/ 2ML, QMO
     Route: 058
     Dates: start: 20170926
  2. COSENTYX [Suspect]
     Active Substance: SECUKINUMAB
     Dosage: 300 MG, QMO
     Route: 058
  3. ASPIRIN [Concomitant]
     Active Substance: ASPIRIN
     Indication: Product used for unknown indication
     Dosage: UNK
     Route: 065

REACTIONS (22)
  - Paraplegia [Unknown]
  - Depressed mood [Unknown]
  - Malaise [Unknown]
  - Headache [Unknown]
  - Dizziness [Recovered/Resolved]
  - Discomfort [Unknown]
  - Hypoaesthesia [Recovering/Resolving]
  - Paraesthesia [Recovering/Resolving]
  - Furuncle [Unknown]
  - Chills [Recovered/Resolved]
  - Pyrexia [Recovered/Resolved]
  - Pyrexia [Recovered/Resolved]
  - Cough [Unknown]
  - Dizziness [Unknown]
  - Vertigo [Recovered/Resolved]
  - Influenza [Unknown]
  - Secretion discharge [Unknown]
  - Vomiting [Unknown]
  - Dysstasia [Unknown]
  - Gait inability [Unknown]
  - Diarrhoea [Unknown]
  - Product prescribing error [Unknown]

NARRATIVE: CASE EVENT DATE: 20171026
